FAERS Safety Report 16320669 (Version 2)
Quarter: 2019Q3

REPORT INFORMATION
  Report Type: Report from Study
  Country: DE (occurrence: DE)
  Receive Date: 20190516
  Receipt Date: 20190713
  Transmission Date: 20191004
  Serious: Yes (Other)
  Sender: FDA-Public Use
  Company Number: PHHY2019DE064794

PATIENT
  Sex: Female

DRUGS (10)
  1. RAMIPRIL. [Suspect]
     Active Substance: RAMIPRIL
     Dosage: 10 MG, (AT THE MORNING), QD
     Route: 065
     Dates: start: 20161207, end: 20170401
  2. MIRTAZAPINE. [Concomitant]
     Active Substance: MIRTAZAPINE
     Indication: SLEEP DISORDER
     Dosage: 15 MG, UNK
     Route: 065
  3. KALINOR [Concomitant]
     Indication: HYPERTENSION
     Dosage: 1.56 G, QD
     Route: 065
     Dates: start: 20161208, end: 20161212
  4. VIACORAM [Concomitant]
     Active Substance: AMLODIPINE BESYLATE\PERINDOPRIL ARGININE
     Indication: HYPERTENSION
     Dosage: 7MG/ 5MG, QD
     Route: 065
     Dates: start: 20170401
  5. RAMIPRIL. [Concomitant]
     Active Substance: RAMIPRIL
     Dosage: 1 DF (5 MG), QD
     Route: 065
     Dates: start: 20160905, end: 20161206
  6. RAMIPRIL. [Suspect]
     Active Substance: RAMIPRIL
     Indication: HYPERTENSION
     Dosage: 2.5 MG,QD (AT THE MORNING)
     Route: 065
     Dates: start: 20160822, end: 20160904
  7. RAMIPRIL. [Suspect]
     Active Substance: RAMIPRIL
     Dosage: 5 MG, (AT THE MORNING), QD
     Route: 065
     Dates: start: 20160905, end: 20161206
  8. RAMIPRIL. [Concomitant]
     Active Substance: RAMIPRIL
     Indication: HYPERTENSION
     Dosage: 0.5 DF (5 MG), QD
     Route: 065
     Dates: start: 20160822, end: 20160904
  9. GILENYA [Suspect]
     Active Substance: FINGOLIMOD HYDROCHLORIDE
     Indication: MULTIPLE SCLEROSIS
     Dosage: 0.5 MG, QD
     Route: 048
     Dates: start: 20160616
  10. RAMIPRIL. [Concomitant]
     Active Substance: RAMIPRIL
     Dosage: 10 MG, UNK
     Route: 065
     Dates: start: 20161207, end: 20170401

REACTIONS (2)
  - Central nervous system lesion [Unknown]
  - Hypokalaemia [Unknown]
